FAERS Safety Report 7475700-X (Version None)
Quarter: 2011Q2

REPORT INFORMATION
  Report Type: 
  Country: None (occurrence: None)
  Receive Date: 20110512
  Receipt Date: 20110502
  Transmission Date: 20111010
  Serious: Yes (Hospitalization, Other)
  Sender: FDA-Public Use
  Company Number: US-ELI_LILLY_AND_COMPANY-US201104000183

PATIENT
  Sex: Female
  Weight: 121.9 kg

DRUGS (10)
  1. BYETTA [Suspect]
     Indication: TYPE 2 DIABETES MELLITUS
     Dosage: 5 UG, BID
     Route: 058
     Dates: start: 20091201
  2. BYETTA [Suspect]
     Dosage: 5 UG, BID
     Route: 058
     Dates: end: 20110302
  3. ACCUPRIL [Concomitant]
     Indication: HYPERTENSION
     Dosage: 40 MG, UNK
     Route: 048
  4. CYMBALTA [Concomitant]
     Indication: DEPRESSION
     Dosage: 60 MG, QD
  5. BUMEX [Concomitant]
     Indication: OEDEMA
     Dosage: 1 MG, UNK
     Route: 048
     Dates: end: 20110301
  6. DITROPAN [Concomitant]
     Indication: HYPERTONIC BLADDER
     Dosage: 10 MG, QD
  7. BYETTA [Suspect]
     Dosage: 10 UG, BID
     Route: 058
  8. GLIPIZIDE [Concomitant]
     Indication: TYPE 2 DIABETES MELLITUS
     Dosage: 10 MG, BID
     Route: 048
     Dates: end: 20110301
  9. METFORMIN HCL [Concomitant]
  10. SYNTHROID [Concomitant]
     Indication: HYPOTHYROIDISM
     Dosage: 50 MEQ, QD

REACTIONS (10)
  - ANAEMIA [None]
  - ABNORMAL BEHAVIOUR [None]
  - RENAL FAILURE ACUTE [None]
  - PNEUMONIA [None]
  - BLOOD GLUCOSE DECREASED [None]
  - BLOOD GLUCOSE INCREASED [None]
  - COMA [None]
  - OFF LABEL USE [None]
  - HYPOVOLAEMIA [None]
  - DEPRESSED LEVEL OF CONSCIOUSNESS [None]
